FAERS Safety Report 9855969 (Version 1)
Quarter: 2014Q1

REPORT INFORMATION
  Report Type: Spontaneous
  Country: US (occurrence: US)
  Receive Date: 20140130
  Receipt Date: 20140130
  Transmission Date: 20141002
  Serious: No
  Sender: FDA-Public Use
  Company Number: US-009507513-1401USA011283

PATIENT
  Age: 69 Year
  Sex: Male

DRUGS (1)
  1. DULERA [Suspect]
     Indication: ASTHMA
     Dosage: 200 MICROGRAM, 2 PUFFS TWICE A DAY
     Route: 055
     Dates: start: 2013

REACTIONS (2)
  - Wheezing [Recovered/Resolved]
  - Product quality issue [Unknown]
